FAERS Safety Report 8958427 (Version 1)
Quarter: 2012Q4

REPORT INFORMATION
  Report Type: Spontaneous
  Country: US (occurrence: None)
  Receive Date: 20121205
  Receipt Date: 20121205
  Transmission Date: 20130627
  Serious: Yes (Hospitalization, Other)
  Sender: FDA-Public Use
  Company Number: None

PATIENT
  Age: 56 Year
  Sex: Female
  Weight: 73.6 kg

DRUGS (2)
  1. LIPITOR [Suspect]
     Indication: BLOOD CHOLESTEROL INCREASED
     Dosage: 40MG  1 time/ day  Oral 047
     Route: 048
     Dates: start: 20120430
  2. ATORVASTATIN [Suspect]
     Indication: BLOOD CHOLESTEROL INCREASED
     Dosage: 40MG  1 TIME/DAY  ORAL 047
     Route: 048
     Dates: start: 20121023

REACTIONS (4)
  - Vomiting [None]
  - Blood urine present [None]
  - Abdominal pain upper [None]
  - Fear [None]
